FAERS Safety Report 19177810 (Version 2)
Quarter: 2021Q4

REPORT INFORMATION
  Report Type: Spontaneous
  Country: CA (occurrence: CA)
  Receive Date: 20210426
  Receipt Date: 20211019
  Transmission Date: 20220303
  Serious: Yes (Life-Threatening)
  Sender: FDA-Public Use
  Company Number: CA-BAUSCH-BL-2021-014113

PATIENT
  Age: 29 Year
  Sex: Male
  Weight: 68.1 kg

DRUGS (1)
  1. BUPROPION [Suspect]
     Active Substance: BUPROPION
     Indication: Attention deficit hyperactivity disorder
     Dosage: TABLET (EXTENDED RELEASE)
     Route: 048

REACTIONS (1)
  - Arrhythmia [Unknown]
